FAERS Safety Report 15908999 (Version 3)
Quarter: 2019Q2

REPORT INFORMATION
  Report Type: Report from Study
  Country: US (occurrence: US)
  Receive Date: 20190204
  Receipt Date: 20190627
  Transmission Date: 20190711
  Serious: Yes (Hospitalization)
  Sender: FDA-Public Use
  Company Number: US-ACTELION-A-US2019-185510

PATIENT
  Sex: Male

DRUGS (6)
  1. TADALAFIL. [Concomitant]
     Active Substance: TADALAFIL
     Dosage: 15 MG, QD
  2. BOSENTAN TABLET 32 MG PED US [Suspect]
     Active Substance: BOSENTAN
     Dosage: 32 MG, BID
     Route: 048
  3. BOSENTAN TABLET 32 MG PED US [Suspect]
     Active Substance: BOSENTAN
     Indication: PULMONARY ARTERIAL HYPERTENSION
     Dosage: 32 MG
     Route: 048
  4. TYVASO [Concomitant]
     Active Substance: TREPROSTINIL
  5. REMODULIN [Concomitant]
     Active Substance: TREPROSTINIL
     Indication: PRODUCT USED FOR UNKNOWN INDICATION
     Dosage: 40 NG/KG, PER MIN
     Route: 048
  6. AMBRISENTAN [Concomitant]
     Active Substance: AMBRISENTAN
     Dosage: 2.5 MG, QD

REACTIONS (1)
  - Therapy change [Unknown]
